FAERS Safety Report 4816317-2 (Version None)
Quarter: 2005Q4

REPORT INFORMATION
  Report Type: 
  Country: None (occurrence: None)
  Receive Date: 20051031
  Receipt Date: 20051026
  Transmission Date: 20060501
  Serious: Yes (Death, Hospitalization)
  Sender: FDA-Public Use
  Company Number: US-MERCK-0510USA09253

PATIENT
  Age: 78 Year
  Sex: Female
  Weight: 48 kg

DRUGS (5)
  1. VIOXX [Suspect]
     Indication: ARTHRITIS
     Route: 048
     Dates: end: 20041001
  2. GLYCOLAX [Suspect]
     Indication: CONSTIPATION
     Route: 048
     Dates: start: 20041001, end: 20041201
  3. DIOVAN [Concomitant]
     Route: 065
  4. NIFEDIPINE [Concomitant]
     Route: 065
  5. SYNTHROID [Concomitant]
     Route: 048

REACTIONS (8)
  - ADVERSE EVENT [None]
  - CLOSTRIDIUM COLITIS [None]
  - CROHN'S DISEASE [None]
  - DIARRHOEA [None]
  - GASTROINTESTINAL INFECTION [None]
  - SALMONELLOSIS [None]
  - SEPSIS [None]
  - WEIGHT DECREASED [None]
